FAERS Safety Report 19506426 (Version 1)
Quarter: 2021Q3

REPORT INFORMATION
  Report Type: Spontaneous
  Country: US (occurrence: US)
  Receive Date: 20210708
  Receipt Date: 20210708
  Transmission Date: 20211014
  Serious: No
  Sender: FDA-Public Use
  Company Number: US-SA-2021SA223381

PATIENT
  Sex: Female

DRUGS (1)
  1. KEVZARA [Suspect]
     Active Substance: SARILUMAB
     Indication: RHEUMATOID ARTHRITIS
     Dosage: 200 MG, QOW (STRENGTH?200MG/1.14ML)
     Route: 058
     Dates: start: 20200409

REACTIONS (3)
  - Weight increased [Unknown]
  - Fatigue [Unknown]
  - Pain [Unknown]
